FAERS Safety Report 18349856 (Version 1)
Quarter: 2020Q4

REPORT INFORMATION
  Report Type: Spontaneous
  Country: US (occurrence: US)
  Receive Date: 20201006
  Receipt Date: 20201006
  Transmission Date: 20210114
  Serious: No
  Sender: FDA-Public Use
  Company Number: None

PATIENT
  Age: 20 Year
  Sex: Female
  Weight: 102 kg

DRUGS (20)
  1. ACETAMINOPHEN 325MG TABLETS PRN [Concomitant]
     Dates: start: 20200621, end: 20200623
  2. HUMALOG KWIKPEN [Concomitant]
     Active Substance: INSULIN LISPRO
     Dates: start: 20200624, end: 20200625
  3. MAGNESIUM 4 G IVPB X1 [Concomitant]
     Dates: start: 20200621, end: 20200621
  4. REMDESIVIR. [Suspect]
     Active Substance: REMDESIVIR
     Indication: CORONAVIRUS TEST POSITIVE
     Route: 041
     Dates: start: 20200621, end: 20200625
  5. AZITHROMYCIN 250MG TABLET [Concomitant]
     Active Substance: AZITHROMYCIN ANHYDROUS
     Dates: start: 20200624, end: 20200625
  6. AZITHROMYCIN 500MG IVPB [Concomitant]
     Dates: start: 20200622, end: 20200623
  7. CEFUROXIME 500MG TABLET [Concomitant]
     Dates: start: 20200623, end: 20200626
  8. KETOROLOC 30MG INJ PRN [Concomitant]
     Dates: start: 20200623, end: 20200624
  9. PREDNISONE 20MG TABLET [Concomitant]
     Active Substance: PREDNISONE
     Dates: start: 20200624, end: 20200625
  10. TRAMADOL 50MG TABLET PRN [Concomitant]
     Dates: start: 20200624, end: 20200625
  11. TRAZADONE 50MG TABLET [Concomitant]
     Dates: start: 20200622, end: 20200625
  12. ENOXAPARIN 40MG INJ [Concomitant]
     Dates: start: 20200622, end: 20200625
  13. LEVEMIR [Concomitant]
     Active Substance: INSULIN DETEMIR
     Dates: start: 20200621, end: 20200625
  14. METHYLPREDNISOLONE 40MG IVP [Concomitant]
     Dates: start: 20200621, end: 20200624
  15. LACTOBACILLUS CAP TID [Concomitant]
     Dates: start: 20200621, end: 20200626
  16. LORAZEPAM 1MG PRN [Concomitant]
     Dates: start: 20200623, end: 20200623
  17. ATORVASTATIN 10MG TABLET [Concomitant]
     Active Substance: ATORVASTATIN
     Dates: start: 20200622, end: 20200624
  18. CEFTRIAXONE 1 G IVPB [Concomitant]
     Dates: start: 20200622, end: 20200623
  19. ALBUTERAL MDI [Concomitant]
     Dates: start: 20200621, end: 20200622
  20. NOVOLOG [Concomitant]
     Active Substance: INSULIN ASPART
     Dates: start: 20200621, end: 20200624

REACTIONS (1)
  - Rash erythematous [None]

NARRATIVE: CASE EVENT DATE: 20200624
